FAERS Safety Report 12100922 (Version 1)
Quarter: 2016Q1

REPORT INFORMATION
  Report Type: Other
  Country: US (occurrence: US)
  Receive Date: 20160222
  Receipt Date: 20160222
  Transmission Date: 20160526
  Serious: Yes (Other)
  Sender: FDA-Public Use
  Company Number: US-SHIRE-US201601731

PATIENT
  Age: 34 Year
  Sex: Female
  Weight: 136.5 kg

DRUGS (25)
  1. TEMAZEPAM. [Concomitant]
     Active Substance: TEMAZEPAM
     Indication: PRODUCT USED FOR UNKNOWN INDICATION
     Dosage: 1 DF, 1X/DAY:QD (BEDTIME)
     Route: 048
     Dates: start: 20160201
  2. ALBUTEROL                          /00139501/ [Concomitant]
     Active Substance: ALBUTEROL
     Indication: PRODUCT USED FOR UNKNOWN INDICATION
     Dosage: 1 DF, AS REQ^D
     Route: 055
     Dates: start: 20160201
  3. OXYCODONE [Concomitant]
     Active Substance: OXYCODONE
     Indication: PRODUCT USED FOR UNKNOWN INDICATION
     Dosage: 1 DF, AS REQ^D (EVERY 3 HOURS AS NEEDED)
     Route: 048
     Dates: start: 20160201
  4. NORETHINDRONE                      /00044901/ [Concomitant]
     Active Substance: NORETHINDRONE
     Indication: PRODUCT USED FOR UNKNOWN INDICATION
     Dosage: 1 DF, 2X/DAY:BID (EVERY 12 HOURS)
     Route: 048
     Dates: start: 20160201
  5. DOXEPIN [Concomitant]
     Active Substance: DOXEPIN
     Indication: PRODUCT USED FOR UNKNOWN INDICATION
     Dosage: 1 DF, OTHER (AS DIRECTED)
     Route: 048
     Dates: start: 20160201
  6. HEPARIN [Concomitant]
     Active Substance: HEPARIN SODIUM
     Indication: CATHETER MANAGEMENT
     Dosage: 100 UNITS, OTHER (AS DIRECTED)
     Route: 042
     Dates: start: 20160129
  7. CINRYZE [Suspect]
     Active Substance: HUMAN C1-ESTERASE INHIBITOR
     Indication: HEREDITARY ANGIOEDEMA
     Dosage: 1000 UNITS, OTHER (EVERY 3 DAYS)
     Route: 042
  8. MUPIROCIN. [Concomitant]
     Active Substance: MUPIROCIN
     Indication: PRODUCT USED FOR UNKNOWN INDICATION
     Dosage: 1 DF (APP), 2X/DAY:BID
     Route: 061
     Dates: start: 20160201
  9. POTASSIUM CHLORIDE. [Concomitant]
     Active Substance: POTASSIUM CHLORIDE
     Indication: PRODUCT USED FOR UNKNOWN INDICATION
     Dosage: 1 DF, 2X/DAY:BID
     Route: 048
     Dates: start: 20160201
  10. CINRYZE [Suspect]
     Active Substance: HUMAN C1-ESTERASE INHIBITOR
     Indication: PROPHYLAXIS
  11. PAROXETINE [Concomitant]
     Active Substance: PAROXETINE\PAROXETINE HYDROCHLORIDE
     Indication: PRODUCT USED FOR UNKNOWN INDICATION
     Dosage: 60 MG, 1X/DAY:QD (MORNING)
     Route: 048
     Dates: start: 20160201
  12. ZOFRAN [Concomitant]
     Active Substance: ONDANSETRON HYDROCHLORIDE
     Indication: PRODUCT USED FOR UNKNOWN INDICATION
     Dosage: 1 DF, 3X/DAY:TID
     Route: 048
     Dates: start: 20160201
  13. BUMETANIDE. [Concomitant]
     Active Substance: BUMETANIDE
     Indication: PRODUCT USED FOR UNKNOWN INDICATION
     Dosage: 5 DF, 1X/DAY:QD
     Route: 048
     Dates: start: 20160201
  14. SPIRONOLACTONE. [Concomitant]
     Active Substance: SPIRONOLACTONE
     Indication: PRODUCT USED FOR UNKNOWN INDICATION
     Dosage: 1 DF, OTHER (AS DIRECTED)
     Route: 048
     Dates: start: 20160201
  15. HYDROXYZINE [Concomitant]
     Active Substance: HYDROXYZINE\HYDROXYZINE HYDROCHLORIDE
     Indication: PRODUCT USED FOR UNKNOWN INDICATION
     Dosage: 1 DF, 4X/DAY:QID (EVERY 6 HOURS)
     Route: 048
     Dates: start: 20160201
  16. SODIUM CHLORIDE. [Concomitant]
     Active Substance: SODIUM CHLORIDE
     Indication: CATHETER MANAGEMENT
     Dosage: 0.9 %, OTHER (AS DIRECTED)
     Route: 042
     Dates: start: 20160129
  17. NEXIUM [Concomitant]
     Active Substance: ESOMEPRAZOLE MAGNESIUM
     Indication: PRODUCT USED FOR UNKNOWN INDICATION
     Dosage: 1 DF, 2X/DAY:BID
     Route: 048
     Dates: start: 20160201
  18. GABAPENTIN. [Concomitant]
     Active Substance: GABAPENTIN
     Indication: PRODUCT USED FOR UNKNOWN INDICATION
     Dosage: 900 MG, 3X/DAY:TID
     Route: 048
     Dates: start: 20160201
  19. BENADRYL [Concomitant]
     Active Substance: DIPHENHYDRAMINE HYDROCHLORIDE
     Indication: PRODUCT USED FOR UNKNOWN INDICATION
     Dosage: 1 DF, AS REQ^D
     Route: 048
     Dates: start: 20160201
  20. ALPRAZOLAM. [Concomitant]
     Active Substance: ALPRAZOLAM
     Indication: PRODUCT USED FOR UNKNOWN INDICATION
     Dosage: 1 DF, AS REQ^D
     Route: 048
     Dates: start: 20160201
  21. EPIPEN [Concomitant]
     Active Substance: EPINEPHRINE
     Indication: ANAPHYLAXIS PROPHYLAXIS
     Dosage: 0.3 MG, AS REQ^D
     Route: 030
     Dates: start: 20160129
  22. CALCIUM VITAMIN D [Concomitant]
     Active Substance: CALCIUM\VITAMIN D
     Indication: PRODUCT USED FOR UNKNOWN INDICATION
     Dosage: 1 DF, 1X/DAY:QD
     Route: 048
     Dates: start: 20160201
  23. STERILE WATER [Concomitant]
     Active Substance: WATER
     Indication: MEDICATION DILUTION
     Dosage: 5 ML, OTHER (AS DIRECTED)
     Route: 042
     Dates: start: 20160129
  24. ZYRTEC [Concomitant]
     Active Substance: CETIRIZINE HYDROCHLORIDE
     Indication: PRODUCT USED FOR UNKNOWN INDICATION
     Dosage: 1 DF, 2X/DAY:BID
     Route: 048
     Dates: start: 20160201
  25. IRON [Concomitant]
     Active Substance: IRON
     Indication: PRODUCT USED FOR UNKNOWN INDICATION
     Dosage: 1 DF, 2X/DAY:BID
     Route: 048
     Dates: start: 20160201

REACTIONS (3)
  - Respiratory tract infection [Unknown]
  - Fatigue [Unknown]
  - Infusion related reaction [Unknown]
